FAERS Safety Report 17848433 (Version 4)
Quarter: 2020Q3

REPORT INFORMATION
  Report Type: Spontaneous
  Country: FR (occurrence: FR)
  Receive Date: 20200602
  Receipt Date: 20200702
  Transmission Date: 20201103
  Serious: Yes (Life-Threatening, Hospitalization, Other)
  Sender: FDA-Public Use
  Company Number: FR-SUN PHARMACEUTICAL INDUSTRIES LTD-2020R1-248773

PATIENT
  Age: 89 Year
  Sex: Female

DRUGS (11)
  1. MELOXICAM. [Suspect]
     Active Substance: MELOXICAM
     Indication: BACK PAIN
     Dosage: UNK
     Route: 065
  2. METFORMIN [Suspect]
     Active Substance: METFORMIN HYDROCHLORIDE
     Indication: TYPE 2 DIABETES MELLITUS
     Dosage: UNK
     Route: 065
  3. PARACETAMOL/OPIUM [Suspect]
     Active Substance: ACETAMINOPHEN\OPIUM
     Indication: BACK PAIN
  4. MORPHINE [Suspect]
     Active Substance: MORPHINE
     Indication: BACK PAIN
     Dosage: 10 MG
     Route: 065
  5. MORPHINE [Suspect]
     Active Substance: MORPHINE
     Indication: BACK PAIN
     Dosage: UNK
     Route: 065
  6. MORPHINE [Suspect]
     Active Substance: MORPHINE
     Dosage: LONG?ACTING
     Route: 065
  7. RILMENIDINE [Concomitant]
     Active Substance: RILMENIDINE
     Indication: HYPERTENSION
     Dosage: UNK
     Route: 065
  8. PARACETAMOL/OPIUM [Suspect]
     Active Substance: ACETAMINOPHEN\OPIUM
     Indication: PAIN
     Dosage: UNK
     Route: 065
  9. HYDROCHLOROTHIAZIDE. [Concomitant]
     Active Substance: HYDROCHLOROTHIAZIDE
     Indication: TYPE 2 DIABETES MELLITUS
     Dosage: UNK
     Route: 065
  10. DICLOFENAC [Suspect]
     Active Substance: DICLOFENAC
     Indication: BACK PAIN
     Dosage: UNK
     Route: 061
  11. VALSARTAN, HYDROCHLOROTHIAZIDE [Concomitant]
     Active Substance: HYDROCHLOROTHIAZIDE\VALSARTAN
     Indication: HYPERTENSION
     Dosage: UNK
     Route: 065

REACTIONS (7)
  - Bradypnoea [Unknown]
  - Acute kidney injury [Recovering/Resolving]
  - Lactic acidosis [Unknown]
  - Depressed level of consciousness [Unknown]
  - Delirium [Unknown]
  - Respiratory failure [Unknown]
  - Overdose [Unknown]
